FAERS Safety Report 5753952-1 (Version None)
Quarter: 2008Q2

REPORT INFORMATION
  Report Type: 
  Country: None (occurrence: None)
  Receive Date: 20080527
  Receipt Date: 20080512
  Transmission Date: 20081010
  Serious: Yes (Hospitalization, Other)
  Sender: FDA-Public Use
  Company Number: THQ2008A00736

PATIENT
  Age: 63 Year
  Sex: Male

DRUGS (2)
  1. LUCRIN INJECTIN  (LEUPROLIDE ACETATE) [Suspect]
     Indication: PROSTATE CANCER
     Dosage: 11.25 MG (11.25 MG, 1 IN 3 M)
     Route: 030
     Dates: start: 20070329, end: 20070630
  2. APOFLUTAM (FLUTAMIDE) [Concomitant]

REACTIONS (6)
  - CONSTIPATION [None]
  - GASTROINTESTINAL OBSTRUCTION [None]
  - GENERAL PHYSICAL HEALTH DETERIORATION [None]
  - NEOPLASM PROSTATE [None]
  - PROSTATOMEGALY [None]
  - WEIGHT DECREASED [None]
